FAERS Safety Report 16158830 (Version 1)
Quarter: 2019Q2

REPORT INFORMATION
  Report Type: Spontaneous
  Country: BR (occurrence: BR)
  Receive Date: 20190404
  Receipt Date: 20190404
  Transmission Date: 20190711
  Serious: Yes (Other)
  Sender: FDA-Public Use
  Company Number: BR-SA-2019SA088222

PATIENT
  Age: 60 Year
  Sex: Female
  Weight: 80 kg

DRUGS (3)
  1. EXPEC [Concomitant]
     Indication: COUGH
  2. EXPEC [Concomitant]
     Indication: HYPERSENSITIVITY
     Dosage: 5 ML, Q8H
     Route: 048
     Dates: start: 20190326
  3. ALLEGRA-D [Suspect]
     Active Substance: FEXOFENADINE\PSEUDOEPHEDRINE
     Indication: HYPERSENSITIVITY
     Dosage: 1 DF, Q12H
     Route: 048
     Dates: start: 20190326, end: 20190327

REACTIONS (8)
  - Dry mouth [Recovering/Resolving]
  - Tachycardia [Recovering/Resolving]
  - Constipation [Recovering/Resolving]
  - Insomnia [Recovering/Resolving]
  - Dysgeusia [Recovering/Resolving]
  - Arrhythmia [Recovering/Resolving]
  - Dizziness [Recovering/Resolving]
  - Condition aggravated [Unknown]

NARRATIVE: CASE EVENT DATE: 20190326
